FAERS Safety Report 24737522 (Version 1)
Quarter: 2024Q4

REPORT INFORMATION
  Report Type: Other
  Country: US (occurrence: US)
  Receive Date: 20241216
  Receipt Date: 20241216
  Transmission Date: 20250114
  Serious: Yes (Other)
  Sender: CHEMI SPA
  Company Number: US-CHEMI SPA-2167147

PATIENT
  Age: 71 Year
  Sex: Female

DRUGS (1)
  1. IBANDRONIC ACID [Suspect]
     Active Substance: IBANDRONIC ACID
     Indication: Osteoporosis postmenopausal

REACTIONS (1)
  - Glomerulosclerosis [Recovered/Resolved]
